FAERS Safety Report 25986985 (Version 1)
Quarter: 2025Q4

REPORT INFORMATION
  Report Type: Spontaneous
  Country: RU (occurrence: RU)
  Receive Date: 20251103
  Receipt Date: 20251103
  Transmission Date: 20260117
  Serious: Yes (Death)
  Sender: BOEHRINGER INGELHEIM
  Company Number: RU-BoehringerIngelheim-2025-BI-104682

PATIENT
  Sex: Female

DRUGS (1)
  1. NINTEDANIB [Suspect]
     Active Substance: NINTEDANIB
     Indication: Eosinophilic granulomatosis with polyangiitis
     Dosage: DAILY DOSE: 150 MILLIGRAM(S)
     Dates: start: 20230512, end: 20230812

REACTIONS (1)
  - Multiple organ dysfunction syndrome [Fatal]
